FAERS Safety Report 10371841 (Version 2)
Quarter: 2014Q3

REPORT INFORMATION
  Report Type: Spontaneous
  Country: US (occurrence: US)
  Receive Date: 20140808
  Receipt Date: 20140902
  Transmission Date: 20150326
  Serious: Yes (Other)
  Sender: FDA-Public Use
  Company Number: US-GLAXOSMITHKLINE-A1083580A

PATIENT
  Age: 54 Year
  Sex: Male

DRUGS (26)
  1. FLUNISOLIDE. [Concomitant]
     Active Substance: FLUNISOLIDE
  2. CALTRATE [Concomitant]
     Active Substance: CALCIUM CARBONATE
  3. SPIRIVA [Concomitant]
     Active Substance: TIOTROPIUM BROMIDE MONOHYDRATE
  4. VITAMIN D3 [Concomitant]
     Active Substance: CHOLECALCIFEROL
  5. CHOLESTYRAMINE. [Concomitant]
     Active Substance: CHOLESTYRAMINE
  6. VITAMIN D [Concomitant]
     Active Substance: CHOLECALCIFEROL
  7. VENTOLIN [Concomitant]
     Active Substance: ALBUTEROL SULFATE
  8. BUSPIRONE [Concomitant]
     Active Substance: BUSPIRONE HYDROCHLORIDE
  9. XANAX [Concomitant]
     Active Substance: ALPRAZOLAM
  10. DIPHENOXYLATE [Concomitant]
     Active Substance: DIPHENOXYLATE
  11. CALCIUM ACETATE. [Concomitant]
     Active Substance: CALCIUM ACETATE
  12. OMEPRAZOLE. [Concomitant]
     Active Substance: OMEPRAZOLE
  13. ADVAIR HFA [Suspect]
     Active Substance: FLUTICASONE PROPIONATE\SALMETEROL XINAFOATE
     Indication: ASTHMA
     Dosage: 1PUFF TWICE PER DAY
     Route: 055
     Dates: start: 2001
  14. MAXZIDE [Concomitant]
     Active Substance: HYDROCHLOROTHIAZIDE\TRIAMTERENE
  15. UNKNOWN MEDICATION [Concomitant]
     Active Substance: UNSPECIFIED INGREDIENT
  16. HUMALOG [Concomitant]
     Active Substance: INSULIN LISPRO
  17. LANTUS [Concomitant]
     Active Substance: INSULIN GLARGINE
  18. BENZONATATE. [Concomitant]
     Active Substance: BENZONATATE
  19. SIMVASTATIN. [Concomitant]
     Active Substance: SIMVASTATIN
  20. LEVOTHYROXINE [Concomitant]
     Active Substance: LEVOTHYROXINE
  21. ALLOPURINOL. [Concomitant]
     Active Substance: ALLOPURINOL
  22. VITAMIN B12 [Concomitant]
     Active Substance: CYANOCOBALAMIN
  23. ALBUTEROL. [Concomitant]
     Active Substance: ALBUTEROL
  24. SINGULAIR [Concomitant]
     Active Substance: MONTELUKAST SODIUM
  25. TAVIST ALLERGY [Concomitant]
     Active Substance: CLEMASTINE FUMARATE
  26. GAS TABLETS [Concomitant]

REACTIONS (1)
  - Dialysis [Not Recovered/Not Resolved]

NARRATIVE: CASE EVENT DATE: 2001
